FAERS Safety Report 7995223-9 (Version None)
Quarter: 2011Q4

REPORT INFORMATION
  Report Type: 
  Country: None (occurrence: None)
  Receive Date: 20111220
  Receipt Date: 20111220
  Transmission Date: 20120403
  Serious: Yes (Hospitalization)
  Sender: FDA-Public Use
  Company Number: None

PATIENT
  Age: 44 Year
  Sex: Male
  Weight: 90.718 kg

DRUGS (1)
  1. COLCHICINE [Suspect]
     Indication: GOUT
     Dosage: 2 TABS
     Route: 048
     Dates: start: 20111214, end: 20111216

REACTIONS (4)
  - INCORRECT DOSE ADMINISTERED [None]
  - TOXICITY TO VARIOUS AGENTS [None]
  - OVERDOSE [None]
  - MALAISE [None]
